FAERS Safety Report 23777772 (Version 3)
Quarter: 2024Q2

REPORT INFORMATION
  Report Type: Spontaneous
  Country: US (occurrence: US)
  Receive Date: 20240424
  Receipt Date: 20240527
  Transmission Date: 20240716
  Serious: No
  Sender: FDA-Public Use
  Company Number: US-PFIZER INC-202400084440

PATIENT
  Age: 15 Year
  Sex: Male
  Weight: 49.9 kg

DRUGS (1)
  1. GENOTROPIN [Suspect]
     Active Substance: SOMATROPIN
     Indication: Growth hormone deficiency
     Dosage: 2.2 MG, 1X/DAY

REACTIONS (2)
  - Expired device used [Unknown]
  - Device malfunction [Unknown]
